FAERS Safety Report 4359746-6 (Version None)
Quarter: 2004Q2

REPORT INFORMATION
  Report Type: 
  Country: None (occurrence: None)
  Receive Date: 20040518
  Receipt Date: 20030407
  Transmission Date: 20050107
  Serious: Yes (Hospitalization, Disabling, Other)
  Sender: FDA-Public Use
  Company Number: US-MERCK-0304USA00739

PATIENT
  Age: 62 Year
  Sex: Female
  Weight: 62 kg

DRUGS (16)
  1. AMITRIPTYLINE HYDROCHLORIDE [Concomitant]
     Indication: GENERALISED ANXIETY DISORDER
     Route: 065
     Dates: start: 19990101, end: 20010101
  2. ROCALTROL [Concomitant]
     Route: 048
  3. OS-CAL + D [Concomitant]
     Route: 065
  4. VALIUM [Concomitant]
     Route: 065
  5. SYNTHROID [Concomitant]
     Route: 065
  6. SYNTHROID [Concomitant]
     Route: 048
     Dates: start: 20010401
  7. CLARITIN [Concomitant]
     Route: 065
  8. MAGNESIUM SULFATE [Concomitant]
     Route: 065
  9. REGLAN [Concomitant]
     Route: 065
  10. REGLAN [Concomitant]
     Route: 065
  11. PRILOSEC [Concomitant]
     Route: 065
  12. DITROPAN XL [Concomitant]
     Route: 065
  13. POTASSIUM CHLORIDE [Concomitant]
     Route: 065
  14. VIOXX [Suspect]
     Indication: PAIN
     Route: 048
     Dates: start: 20000918, end: 20010501
  15. VIOXX [Suspect]
     Indication: LOCALISED OSTEOARTHRITIS
     Route: 048
     Dates: start: 20000918, end: 20010501
  16. AMBIEN [Concomitant]
     Route: 065
     Dates: start: 20000101

REACTIONS (40)
  - AMNESIA [None]
  - ANAEMIA HAEMOLYTIC AUTOIMMUNE [None]
  - ANXIETY [None]
  - ARTHRALGIA [None]
  - ATELECTASIS [None]
  - BLOOD CHOLESTEROL INCREASED [None]
  - BLOOD CREATINE PHOSPHOKINASE INCREASED [None]
  - CELLULITIS [None]
  - CEREBROVASCULAR ACCIDENT [None]
  - CHOLELITHIASIS [None]
  - COAGULOPATHY [None]
  - CYSTOCELE [None]
  - DECREASED APPETITE [None]
  - DISTURBANCE IN ATTENTION [None]
  - DRUG HYPERSENSITIVITY [None]
  - DYSPNOEA [None]
  - EYE PAIN [None]
  - HAEMATOCHEZIA [None]
  - HAEMORRHAGE [None]
  - HYPERCALCAEMIA [None]
  - HYPERGLYCAEMIA [None]
  - HYPOCALCAEMIA [None]
  - HYPOMAGNESAEMIA [None]
  - INSOMNIA [None]
  - NEUROGENIC BLADDER [None]
  - OESOPHAGEAL DISORDER [None]
  - PULMONARY GRANULOMA [None]
  - PYREXIA [None]
  - RECTOCELE [None]
  - RENAL FAILURE [None]
  - SINUSITIS [None]
  - TINNITUS [None]
  - TOOTH DISORDER [None]
  - TOOTHACHE [None]
  - TRACHEOBRONCHITIS [None]
  - TRANSIENT ISCHAEMIC ATTACK [None]
  - UPPER RESPIRATORY TRACT INFECTION [None]
  - VIRAL INFECTION [None]
  - VISUAL DISTURBANCE [None]
  - WEIGHT DECREASED [None]
